FAERS Safety Report 14539695 (Version 1)
Quarter: 2018Q1

REPORT INFORMATION
  Report Type: Spontaneous
  Country: US (occurrence: US)
  Receive Date: 20180215
  Receipt Date: 20180215
  Transmission Date: 20180509
  Serious: Yes (Disabling)
  Sender: FDA-Public Use
  Company Number: None

PATIENT
  Age: 39 Year
  Sex: Male
  Weight: 189 kg

DRUGS (11)
  1. SERTALINE [Suspect]
     Active Substance: SERTRALINE HYDROCHLORIDE
     Indication: DEPRESSION
     Dosage: ?          QUANTITY:1 TABLET(S);?
     Route: 048
     Dates: start: 20171201, end: 20180214
  2. CPAP [Concomitant]
     Active Substance: DEVICE
  3. HYDROLOZINE [Concomitant]
  4. COATED ASPIRIN [Concomitant]
     Active Substance: ASPIRIN
  5. SERTALINE [Suspect]
     Active Substance: SERTRALINE HYDROCHLORIDE
     Indication: ANXIETY
     Dosage: ?          QUANTITY:1 TABLET(S);?
     Route: 048
     Dates: start: 20171201, end: 20180214
  6. SERTALINE [Suspect]
     Active Substance: SERTRALINE HYDROCHLORIDE
     Indication: STRESS
     Dosage: ?          QUANTITY:1 TABLET(S);?
     Route: 048
     Dates: start: 20171201, end: 20180214
  7. OTHERS [Concomitant]
  8. FIBER TABLETS [Concomitant]
  9. LOSARTAN. [Concomitant]
     Active Substance: LOSARTAN
  10. BIPAP [Concomitant]
     Active Substance: DEVICE
  11. VITAMIN D [Concomitant]
     Active Substance: CHOLECALCIFEROL

REACTIONS (3)
  - Night sweats [None]
  - Hot flush [None]
  - Feeling hot [None]

NARRATIVE: CASE EVENT DATE: 20180203
